FAERS Safety Report 25144714 (Version 2)
Quarter: 2025Q2

REPORT INFORMATION
  Report Type: Spontaneous
  Country: CZ (occurrence: CZ)
  Receive Date: 20250401
  Receipt Date: 20250411
  Transmission Date: 20250717
  Serious: Yes (Other)
  Sender: GILEAD
  Company Number: CZ-GILEAD-2025-0708947

PATIENT
  Age: 34 Year
  Sex: Male

DRUGS (3)
  1. TRUVADA [Suspect]
     Active Substance: EMTRICITABINE\TENOFOVIR DISOPROXIL FUMARATE
     Indication: Prophylaxis against HIV infection
     Route: 065
     Dates: start: 2017
  2. DOXY [DOXYCYCLINE] [Concomitant]
     Indication: Prophylaxis
     Dosage: 200 MG, QD
     Dates: start: 202310
  3. CEFTRIAXONE [Concomitant]
     Active Substance: CEFTRIAXONE

REACTIONS (6)
  - Syphilis [Unknown]
  - Gonococcal infection [Unknown]
  - Chlamydial infection [Unknown]
  - Rash [Unknown]
  - Staphylococcal infection [Unknown]
  - Shigella infection [Unknown]

NARRATIVE: CASE EVENT DATE: 20200101
